FAERS Safety Report 10785667 (Version 3)
Quarter: 2015Q2

REPORT INFORMATION
  Report Type: Spontaneous
  Country: US (occurrence: US)
  Receive Date: 20150211
  Receipt Date: 20150422
  Transmission Date: 20150821
  Serious: Yes (Hospitalization, Other)
  Sender: FDA-Public Use
  Company Number: US-PFIZER INC-2015052040

PATIENT
  Age: 71 Year
  Sex: Male
  Weight: 107 kg

DRUGS (1)
  1. REVATIO [Suspect]
     Active Substance: SILDENAFIL CITRATE
     Indication: BLOOD PRESSURE
     Dosage: 20 MG, 3X/DAY
     Dates: start: 2012

REACTIONS (7)
  - Fall [Recovered/Resolved]
  - Product use issue [Unknown]
  - Arthropathy [Recovered/Resolved]
  - Clostridium difficile infection [Recovered/Resolved]
  - Ear infection [Recovered/Resolved]
  - Arthritis infective [Recovered/Resolved]
  - Joint injury [Recovered/Resolved]

NARRATIVE: CASE EVENT DATE: 2012
